FAERS Safety Report 7455416 (Version 8)
Quarter: 2014Q1

REPORT INFORMATION
  Report Type: Spontaneous
  Country: JP (occurrence: JP)
  Receive Date: 20100707
  Receipt Date: 20140212
  Transmission Date: 20141002
  Serious: Yes (Hospitalization)
  Sender: FDA-Public Use
  Company Number: JP-JNJFOC-20100608549

PATIENT
  Age: 63 Year
  Sex: Female
  Weight: 41 kg

DRUGS (11)
  1. REMICADE [Suspect]
     Indication: RHEUMATOID ARTHRITIS
     Dosage: INFUSIONS 1 - 5
     Route: 042
     Dates: start: 20070306
  2. REMICADE [Suspect]
     Indication: RHEUMATOID ARTHRITIS
     Dosage: 6TH THROUGH 19TH INFUSIONS
     Route: 042
     Dates: start: 20071130, end: 20100426
  3. RHEUMATREX [Suspect]
     Indication: RHEUMATOID ARTHRITIS
     Route: 048
     Dates: start: 20060609, end: 20100614
  4. FOLIAMIN [Concomitant]
     Route: 048
     Dates: start: 20060609, end: 20100604
  5. CYTOTEC [Concomitant]
     Indication: PROPHYLAXIS
     Route: 048
     Dates: start: 20060609
  6. LOXONIN [Concomitant]
     Indication: RHEUMATOID ARTHRITIS
     Route: 048
     Dates: start: 20060609
  7. MUCOSTA [Concomitant]
     Indication: PROPHYLAXIS
     Route: 048
     Dates: start: 20060609
  8. PROPACIL [Concomitant]
     Indication: HYPOTHYROIDISM
     Route: 048
     Dates: start: 20060609
  9. SALIGREN [Concomitant]
     Indication: SJOGREN^S SYNDROME
     Route: 048
     Dates: start: 20061030
  10. OPALMON [Concomitant]
     Indication: SPINAL COLUMN STENOSIS
     Route: 048
     Dates: start: 20090511
  11. BONOTEO [Concomitant]
     Indication: OSTEOPOROSIS
     Route: 048
     Dates: start: 20100401

REACTIONS (1)
  - Lymphoproliferative disorder [Recovering/Resolving]
